FAERS Safety Report 5003921-4 (Version None)
Quarter: 2006Q2

REPORT INFORMATION
  Report Type: 
  Country: None (occurrence: None)
  Receive Date: 20060517
  Receipt Date: 20060508
  Transmission Date: 20061013
  Serious: Yes (Hospitalization, Other)
  Sender: FDA-Public Use
  Company Number: US-JNJFOC-20060500189

PATIENT
  Age: 65 Year
  Sex: Female

DRUGS (6)
  1. REMICADE [Suspect]
     Route: 042
  2. REMICADE [Suspect]
     Indication: CROHN'S DISEASE
     Route: 042
  3. ETODOLAC [Concomitant]
     Indication: ARTHRITIS
  4. CLONIDINE [Concomitant]
     Indication: BLOOD PRESSURE
  5. TOPROL-XL [Concomitant]
     Indication: BLOOD PRESSURE
  6. IMURAN [Concomitant]
     Indication: CROHN'S DISEASE

REACTIONS (3)
  - AMYOTROPHIC LATERAL SCLEROSIS [None]
  - DIARRHOEA [None]
  - URINARY TRACT INFECTION [None]
